FAERS Safety Report 9818445 (Version 1)
Quarter: 2014Q1

REPORT INFORMATION
  Report Type: Spontaneous
  Country: US (occurrence: US)
  Receive Date: 20140115
  Receipt Date: 20140115
  Transmission Date: 20141002
  Serious: No
  Sender: FDA-Public Use
  Company Number: US-PFIZER INC-2014011634

PATIENT
  Age: 47 Year
  Sex: Female
  Weight: 127 kg

DRUGS (4)
  1. PRISTIQ [Suspect]
     Indication: DEPRESSION
     Dosage: 50 MG, 1X/DAY
     Route: 048
  2. PRISTIQ [Suspect]
     Dosage: 100 MG, 1X/DAY
     Route: 048
  3. PRISTIQ [Suspect]
     Dosage: 50 MG, 1X/DAY
     Route: 048
  4. VASOTEC [Concomitant]
     Dosage: UNK

REACTIONS (6)
  - Blood cholesterol increased [Unknown]
  - Alopecia [Unknown]
  - Vision blurred [Unknown]
  - Eye pain [Unknown]
  - Abnormal sensation in eye [Unknown]
  - Pruritus [Unknown]
